FAERS Safety Report 7812886-9 (Version None)
Quarter: 2011Q4

REPORT INFORMATION
  Report Type: 
  Country: None (occurrence: None)
  Receive Date: 20111013
  Receipt Date: 20111005
  Transmission Date: 20120403
  Serious: Yes (Other)
  Sender: FDA-Public Use
  Company Number: US-CELGENEUS-163-21880-11100806

PATIENT
  Sex: Female
  Weight: 63.56 kg

DRUGS (11)
  1. CITALOPRAM [Concomitant]
     Route: 065
  2. BIAXIN [Concomitant]
     Route: 065
  3. NEXIUM [Concomitant]
     Route: 065
  4. ABILIFY [Concomitant]
     Route: 065
  5. VITAMIN D [Concomitant]
     Route: 065
  6. ASPIRIN [Concomitant]
     Route: 065
  7. ALPRAZOLAM [Concomitant]
     Route: 065
  8. CALCIUM CARBONATE [Concomitant]
     Route: 065
  9. DEXAMETHASONE [Concomitant]
     Route: 065
  10. M.V.I. [Concomitant]
     Route: 065
  11. REVLIMID [Suspect]
     Indication: MULTIPLE MYELOMA
     Dosage: 25 MILLIGRAM
     Route: 048
     Dates: start: 20070317

REACTIONS (1)
  - HAEMORRHOIDAL HAEMORRHAGE [None]
